FAERS Safety Report 19101729 (Version 1)
Quarter: 2021Q2

REPORT INFORMATION
  Report Type: Spontaneous
  Country: US (occurrence: US)
  Receive Date: 20210407
  Receipt Date: 20210407
  Transmission Date: 20210717
  Serious: Yes (Other)
  Sender: FDA-Public Use
  Company Number: US-ACORDA-ACO_168421_2021

PATIENT
  Sex: Female

DRUGS (3)
  1. AMPYRA [Suspect]
     Active Substance: DALFAMPRIDINE
     Indication: PRODUCT USED FOR UNKNOWN INDICATION
     Dosage: UNK
     Route: 065
  2. LEMTRADA [Suspect]
     Active Substance: ALEMTUZUMAB
     Dosage: 12 MILLIGRAM, QD
     Route: 041
     Dates: start: 20171218, end: 20171220
  3. LEMTRADA [Suspect]
     Active Substance: ALEMTUZUMAB
     Indication: MULTIPLE SCLEROSIS
     Dosage: 12 MILLIGRAM, QD
     Route: 041
     Dates: start: 20161018, end: 20161022

REACTIONS (3)
  - Progressive multiple sclerosis [Not Recovered/Not Resolved]
  - Fatigue [Unknown]
  - Therapy cessation [Unknown]
